FAERS Safety Report 9494882 (Version 2)
Quarter: 2014Q1

REPORT INFORMATION
  Report Type: Report from Study
  Country: DE (occurrence: DE)
  Receive Date: 20130903
  Receipt Date: 20140214
  Transmission Date: 20141002
  Serious: Yes (Life-Threatening, Hospitalization)
  Sender: FDA-Public Use
  Company Number: DE-NAPPMUNDI-DEU-2013-0012217

PATIENT
  Age: 66 Year
  Sex: Male
  Weight: 87 kg

DRUGS (14)
  1. MSI MUNDIPHARMA [Suspect]
     Indication: PAIN
     Dosage: 36 MG, DAILY
     Route: 042
     Dates: start: 20130707, end: 20130708
  2. IDARUBICIN HCL [Suspect]
     Indication: ACUTE MYELOID LEUKAEMIA
     Dosage: 24 MG, DAILY
     Route: 042
     Dates: start: 20130705, end: 20130707
  3. CYTARABINE [Suspect]
     Indication: ACUTE MYELOID LEUKAEMIA
     Dosage: 200 MG, UNK
     Route: 042
     Dates: start: 20130705, end: 20130708
  4. ETOPOSIDE [Suspect]
     Indication: ACUTE MYELOID LEUKAEMIA
     Dosage: UNK
  5. ACICLOVIR [Concomitant]
     Indication: HERPES SIMPLEX
     Dosage: 3000 MG, DAILY
     Route: 048
     Dates: start: 20130707
  6. COTRIM FORTE [Concomitant]
     Indication: PROPHYLAXIS
     Dosage: 960 MG, Q48H
     Route: 048
     Dates: start: 20130627
  7. PANTOZOL                           /01263204/ [Concomitant]
     Indication: PROPHYLAXIS
     Dosage: 40 MG, DAILY
     Route: 048
     Dates: start: 20130627
  8. ZYLORIC [Concomitant]
     Indication: BLOOD URIC ACID DECREASED
     Dosage: 300 MG, UNK
     Route: 048
     Dates: start: 20130627
  9. SIMVASTATIN [Concomitant]
     Indication: LIPIDS INCREASED
     Dosage: 40 UNK, DAILY
     Route: 048
     Dates: start: 20130704
  10. DELIX                              /00885601/ [Concomitant]
     Indication: HYPERTENSION
     Dosage: 1.25 MG, DAILY
     Route: 048
     Dates: start: 20130706
  11. TAZOBAC [Concomitant]
     Indication: INFECTION
     Dosage: 13.5 G, DAILY
     Route: 048
     Dates: start: 20130707, end: 20130708
  12. VFEND [Concomitant]
     Indication: PROPHYLAXIS
     Dosage: 400 MG, DAILY
     Route: 042
     Dates: start: 20130707
  13. NOVALGIN                           /06276704/ [Concomitant]
     Indication: PAIN
     Dosage: 4 G, UNK
     Route: 042
     Dates: start: 20130707
  14. IRENAT [Concomitant]
     Indication: HYPERTHYROIDISM
     Dosage: 1.2 G, DAILY
     Route: 048
     Dates: start: 20130628

REACTIONS (1)
  - Sepsis [Recovered/Resolved]
